FAERS Safety Report 16472996 (Version 1)
Quarter: 2019Q2

REPORT INFORMATION
  Report Type: Spontaneous
  Country: GB (occurrence: GB)
  Receive Date: 20190625
  Receipt Date: 20190625
  Transmission Date: 20190711
  Serious: Yes (Disabling, Other)
  Sender: FDA-Public Use
  Company Number: GB-ALKEM LABORATORIES LIMITED-GB-ALKEM-2019-05767

PATIENT
  Age: 76 Year
  Sex: Male

DRUGS (1)
  1. CEFUROXIME AXETIL. [Suspect]
     Active Substance: CEFUROXIME AXETIL
     Indication: PRODUCT USED FOR UNKNOWN INDICATION
     Dosage: 10 MG/0.1 ML

REACTIONS (5)
  - Maculopathy [Not Recovered/Not Resolved]
  - Retinoschisis [Not Recovered/Not Resolved]
  - Incorrect dose administered [Unknown]
  - Retinal toxicity [Not Recovered/Not Resolved]
  - Product preparation issue [Unknown]
